FAERS Safety Report 4658047-6 (Version None)
Quarter: 2005Q2

REPORT INFORMATION
  Report Type: 
  Country: None (occurrence: None)
  Receive Date: 20050510
  Receipt Date: 20050429
  Transmission Date: 20051028
  Serious: Yes (Life-Threatening, Hospitalization, Other)
  Sender: FDA-Public Use
  Company Number: GB-MERCK-0505GBR00023

PATIENT
  Age: 62 Year
  Sex: Male

DRUGS (7)
  1. ZOCOR [Suspect]
     Route: 048
     Dates: end: 20050413
  2. ATENOLOL [Concomitant]
     Route: 065
  3. BENDROFLUMETHIAZIDE [Concomitant]
     Route: 065
  4. ASPIRIN [Concomitant]
     Route: 065
     Dates: end: 20050413
  5. AMOXICILLIN [Concomitant]
     Indication: BRONCHITIS
     Route: 065
     Dates: start: 20041101
  6. CIPROFLOXACIN [Concomitant]
     Indication: BRONCHITIS
     Route: 065
     Dates: start: 20040101
  7. TETRACYCLINE [Concomitant]
     Route: 065

REACTIONS (2)
  - BACK PAIN [None]
  - MYALGIA [None]
